FAERS Safety Report 4330491-6 (Version None)
Quarter: 2004Q1

REPORT INFORMATION
  Report Type: 
  Country: None (occurrence: None)
  Receive Date: 20040329
  Receipt Date: 20040312
  Transmission Date: 20041129
  Serious: Yes (Death)
  Sender: FDA-Public Use
  Company Number: JP-JNJFOC-20040204275

PATIENT
  Age: 53 Year
  Sex: Female

DRUGS (8)
  1. FENTANYL [Suspect]
     Indication: CANCER PAIN
     Dosage: 2.5 MG, 1 IN 3 DAY, TRANSDERMAL
     Route: 062
     Dates: start: 20040109, end: 20040120
  2. BETAMETHASONE SODIUM PHOSPHATE [Concomitant]
  3. LACTATE RINGER'S SOLUTION: MALT [Concomitant]
  4. MIXED VITAMIN PREPARATIONS [Concomitant]
  5. FAMOTIDINE [Concomitant]
  6. DICLOFENAC SODIUM [Concomitant]
  7. BISACODYL (BISACODYL) [Concomitant]
  8. METOCLOPRAMIDE [Concomitant]

REACTIONS (7)
  - BRADYCARDIA [None]
  - BREAST CANCER [None]
  - CONSTIPATION [None]
  - MALIGNANT NEOPLASM PROGRESSION [None]
  - METASTASES TO CENTRAL NERVOUS SYSTEM [None]
  - NAUSEA [None]
  - VOMITING [None]
